FAERS Safety Report 7888153-4 (Version None)
Quarter: 2011Q4

REPORT INFORMATION
  Report Type: 
  Country: None (occurrence: None)
  Receive Date: 20111103
  Receipt Date: 20111026
  Transmission Date: 20120403
  Serious: Yes (Hospitalization)
  Sender: FDA-Public Use
  Company Number: IT-MPIJNJ-2011-04907

PATIENT

DRUGS (6)
  1. ALKERAN [Concomitant]
     Indication: MULTIPLE MYELOMA
     Dosage: 2 MG, UNK
     Dates: start: 20090609, end: 20100222
  2. PREDNISONE [Concomitant]
     Indication: MULTIPLE MYELOMA
     Dosage: 50 MG, UNK
     Dates: start: 20090609, end: 20100222
  3. DEXAMETHASONE [Concomitant]
     Indication: MULTIPLE MYELOMA
  4. VELCADE [Suspect]
     Indication: MULTIPLE MYELOMA
     Dosage: 2 UNK, UNK
     Route: 065
     Dates: start: 20090609, end: 20100222
  5. DOXORUBICIN HCL [Concomitant]
     Indication: MULTIPLE MYELOMA
  6. OSELTAMIVIR [Concomitant]

REACTIONS (1)
  - H1N1 INFLUENZA [None]
